FAERS Safety Report 5346718-8 (Version None)
Quarter: 2007Q2

REPORT INFORMATION
  Report Type: 
  Country: None (occurrence: None)
  Receive Date: 20070605
  Receipt Date: 20070524
  Transmission Date: 20071010
  Serious: Yes (Hospitalization)
  Sender: FDA-Public Use
  Company Number: FR-PFIZER INC-2007043218

PATIENT
  Age: 85 Year
  Sex: Female
  Weight: 98 kg

DRUGS (15)
  1. NEURONTIN [Suspect]
     Route: 048
  2. CODOLIPRANE [Suspect]
     Route: 048
     Dates: start: 20070126, end: 20070201
  3. EUPRESSYL [Suspect]
     Indication: ESSENTIAL HYPERTENSION
     Route: 048
  4. LORAZEPAM [Suspect]
     Route: 048
  5. LOSARTAN POTASSIUM AND HYDROCHLOROTHIAZIDE [Suspect]
     Indication: ESSENTIAL HYPERTENSION
     Route: 048
  6. OMEPRAZOLE [Suspect]
     Route: 048
  7. MOXONIDINE [Concomitant]
  8. MIRTAZAPINE [Concomitant]
  9. NAFTILUX [Concomitant]
  10. LOXEN [Concomitant]
  11. ASPEGIC 1000 [Concomitant]
  12. NOVONORM [Concomitant]
  13. UMULINE [Concomitant]
  14. HUMALOG MIX 25 [Concomitant]
  15. DAFALGAN [Concomitant]

REACTIONS (2)
  - CONFUSIONAL STATE [None]
  - FALL [None]
